FAERS Safety Report 9158699 (Version 1)
Quarter: 2013Q1

REPORT INFORMATION
  Report Type: Report from Study
  Country: TW (occurrence: TW)
  Receive Date: 20130312
  Receipt Date: 20130312
  Transmission Date: 20140127
  Serious: Yes (Death, Life-Threatening, Hospitalization)
  Sender: FDA-Public Use
  Company Number: TW-CELGENEUS-153-CCAZA-12112305

PATIENT
  Age: 86 Year
  Sex: Male
  Weight: 72 kg

DRUGS (28)
  1. AZACITIDINE INJECTABLE [Suspect]
     Indication: MYELODYSPLASTIC SYNDROME
     Dosage: 1800 MILLIGRAM/SQ. METER
     Route: 058
     Dates: start: 20121113, end: 20121119
  2. AZACITIDINE INJECTABLE [Suspect]
     Dosage: 1800 MILLIGRAM/SQ. METER
     Route: 058
     Dates: start: 20121211, end: 20121218
  3. NORVASC [Concomitant]
     Indication: HYPERTENSION
     Dosage: 2.5 MILLIGRAM
     Route: 065
     Dates: start: 20121030, end: 20121115
  4. NORVASC [Concomitant]
     Dosage: 5 MILLIGRAM
     Route: 065
     Dates: start: 20121116, end: 20121130
  5. VITAMIN B [Concomitant]
     Indication: HYPOVITAMINOSIS
     Dosage: 4 TABLET
     Route: 048
     Dates: start: 20110331, end: 20130114
  6. MUBROXOL [Concomitant]
     Indication: BRONCHITIS CHRONIC
     Dosage: 90 MILLIGRAM
     Route: 048
     Dates: start: 20110721, end: 20130114
  7. ISMO 20 [Concomitant]
     Indication: HYPERTENSION
     Dosage: 20 MILLIGRAM
     Route: 048
     Dates: start: 20120105
  8. FOCUS [Concomitant]
     Indication: SPINAL OSTEOARTHRITIS
     Route: 048
     Dates: start: 20120905, end: 20130114
  9. HYZAAR [Concomitant]
     Indication: HYPERTENSION
     Dosage: 1 TABLET
     Route: 048
     Dates: start: 20110331, end: 20130110
  10. XATRAL [Concomitant]
     Indication: BENIGN PROSTATIC HYPERPLASIA
     Dosage: 10 MILLIGRAM
     Route: 048
     Dates: start: 20110331, end: 20130114
  11. PROLEAK [Concomitant]
     Indication: BENIGN PROSTATIC HYPERPLASIA
     Dosage: 5 MILLIGRAM
     Route: 048
     Dates: start: 20120725, end: 20130114
  12. IMOVANE [Concomitant]
     Indication: INSOMNIA
     Dosage: 3.75 MILLIGRAM
     Route: 048
     Dates: start: 20121105, end: 20121119
  13. KYTRIL [Concomitant]
     Indication: PROPHYLAXIS OF NAUSEA AND VOMITING
     Dosage: 1 MILLIGRAM
     Route: 048
     Dates: start: 20121113, end: 20121119
  14. KYTRIL [Concomitant]
     Dosage: 1 MILLIGRAM
     Route: 048
     Dates: start: 20121211, end: 20121214
  15. EURICON [Concomitant]
     Indication: PROPHYLAXIS
     Dosage: 50 MILLIGRAM
     Route: 048
     Dates: start: 20121113, end: 20121119
  16. EURICON [Concomitant]
     Dosage: 50 MILLIGRAM
     Route: 048
     Dates: start: 20121211, end: 20121214
  17. ALLEGRA [Concomitant]
     Indication: BRONCHITIS CHRONIC
     Dosage: 60 MILLIGRAM
     Route: 048
     Dates: start: 20120918, end: 20121023
  18. DEFENSE [Concomitant]
     Indication: BRONCHITIS CHRONIC
     Dosage: 600 MILLIGRAM
     Route: 048
     Dates: start: 20120918, end: 20121023
  19. MEDICON-A [Concomitant]
     Indication: BRONCHITIS CHRONIC
     Dosage: 2 CAPSULE
     Route: 048
     Dates: start: 20120925, end: 20121023
  20. MEDICON-A [Concomitant]
     Indication: PNEUMONIA
     Dosage: 3 CAPSULE
     Route: 048
     Dates: start: 20121231, end: 20130101
  21. SCANOL [Concomitant]
     Indication: PROPHYLAXIS
     Dosage: 2000 MILLIGRAM
     Route: 048
     Dates: start: 20121116, end: 20121120
  22. ACETYLCYSTEINE [Concomitant]
     Indication: BRONCHITIS CHRONIC
     Dosage: 600 MILLIGRAM
     Route: 048
     Dates: start: 20121207, end: 20121214
  23. ACETYLCYSTEINE [Concomitant]
     Indication: PNEUMONIA
     Dosage: 600 MILLIGRAM
     Route: 048
     Dates: start: 20121231, end: 20130114
  24. NYSTATIN [Concomitant]
     Indication: BRONCHITIS CHRONIC
     Dosage: 1000000 IU (INTERNATIONAL UNIT)
     Route: 048
     Dates: start: 20121207, end: 20121214
  25. NYSTATIN [Concomitant]
     Indication: INFECTION PROPHYLAXIS
     Dosage: 1000000 IU (INTERNATIONAL UNIT)
     Route: 048
     Dates: start: 20121216, end: 20130114
  26. AUGMENTIN [Concomitant]
     Indication: BRONCHITIS CHRONIC
     Dosage: 2 TABLET
     Route: 048
     Dates: start: 20121119, end: 20121123
  27. AUGMENTIN [Concomitant]
     Indication: PNEUMONIA
     Dosage: 2 TABLET
     Route: 048
     Dates: start: 20121214, end: 20121216
  28. AUGMENTIN [Concomitant]
     Dosage: 3600 MILLIGRAM
     Route: 041
     Dates: start: 20121216, end: 20121219

REACTIONS (4)
  - Pneumonia [Fatal]
  - Hypotension [Recovered/Resolved]
  - Pyrexia [Recovered/Resolved]
  - Pneumonia [Recovered/Resolved with Sequelae]
